FAERS Safety Report 8096752-2 (Version None)
Quarter: 2012Q1

REPORT INFORMATION
  Report Type: 
  Country: None (occurrence: None)
  Receive Date: 20120129
  Receipt Date: 20111101
  Transmission Date: 20120608
  Serious: No
  Sender: FDA-Public Use
  Company Number: US-ABBOTT-11P-163-0857423-00

PATIENT
  Sex: Female
  Weight: 73.548 kg

DRUGS (3)
  1. HUMIRA [Suspect]
     Indication: PSORIATIC ARTHROPATHY
  2. CLOBETASOL PROPIONATE [Concomitant]
     Indication: PRURITUS
     Dosage: USP
  3. HUMIRA [Suspect]
     Indication: PSORIASIS
     Dates: start: 20110607

REACTIONS (14)
  - INJECTION SITE SWELLING [None]
  - DYSSTASIA [None]
  - INJECTION SITE HAEMATOMA [None]
  - OEDEMA PERIPHERAL [None]
  - BACK PAIN [None]
  - PRODUCT CONTAINER SEAL ISSUE [None]
  - INJECTION SITE PAIN [None]
  - DIZZINESS [None]
  - INJECTION SITE HAEMORRHAGE [None]
  - PAIN IN EXTREMITY [None]
  - INJECTION SITE ERYTHEMA [None]
  - GRIP STRENGTH DECREASED [None]
  - PRODUCT EXPIRATION DATE ISSUE [None]
  - FATIGUE [None]
